FAERS Safety Report 8342970-5 (Version None)
Quarter: 2012Q2

REPORT INFORMATION
  Report Type: 
  Country: None (occurrence: None)
  Receive Date: 20120504
  Receipt Date: 20120504
  Transmission Date: 20120825
  Serious: Yes (Hospitalization)
  Sender: FDA-Public Use
  Company Number: None

PATIENT
  Age: 53 Year
  Sex: Female
  Weight: 53 kg

DRUGS (3)
  1. PACLITAXEL [Suspect]
     Dosage: 175MG/M2
     Dates: start: 20120329, end: 20120329
  2. RIDAFOROLIMUS [Suspect]
     Indication: URETHRAL CANCER
     Dosage: 10MG PO DAYS 1-5; 8-12
     Route: 048
     Dates: start: 20120329, end: 20120412
  3. CARBOPLATIN [Suspect]
     Indication: URETHRAL CANCER
     Dosage: CARBOAUC5     2012
     Dates: start: 20120329, end: 20120329

REACTIONS (9)
  - DYSPNOEA [None]
  - HYPOPHAGIA [None]
  - CONDITION AGGRAVATED [None]
  - HEART RATE INCREASED [None]
  - NAUSEA [None]
  - OEDEMA PERIPHERAL [None]
  - MALIGNANT PLEURAL EFFUSION [None]
  - COUGH [None]
  - FLUID INTAKE REDUCED [None]
